FAERS Safety Report 14643764 (Version 1)
Quarter: 2018Q1

REPORT INFORMATION
  Report Type: Report from Study
  Country: CO (occurrence: CO)
  Receive Date: 20180315
  Receipt Date: 20180315
  Transmission Date: 20180509
  Serious: Yes (Hospitalization)
  Sender: FDA-Public Use
  Company Number: CO-INCYTE CORPORATION-2018IN002219

PATIENT

DRUGS (1)
  1. JAKAVI [Suspect]
     Active Substance: RUXOLITINIB
     Indication: MYELOFIBROSIS
     Dosage: 20 MG, Q12H
     Route: 048

REACTIONS (3)
  - Hyperglycaemia [Unknown]
  - Blood glucose increased [Unknown]
  - Back pain [Unknown]

NARRATIVE: CASE EVENT DATE: 20180228
